FAERS Safety Report 9643699 (Version 2)
Quarter: 2013Q4

REPORT INFORMATION
  Report Type: Spontaneous
  Country: US (occurrence: US)
  Receive Date: 20131024
  Receipt Date: 20131219
  Transmission Date: 20140711
  Serious: Yes (Hospitalization)
  Sender: FDA-Public Use
  Company Number: US-BRISTOL-MYERS SQUIBB COMPANY-19576198

PATIENT
  Age: 32 Year
  Sex: Female
  Weight: 131.97 kg

DRUGS (7)
  1. ABILIFY [Suspect]
     Indication: BIPOLAR I DISORDER
     Dosage: DOSE REDUCED TO 10MG
     Route: 048
     Dates: end: 201308
  2. DEPAKOTE [Concomitant]
  3. METFORMIN [Concomitant]
  4. CELXA [Concomitant]
  5. XANAX [Concomitant]
  6. OMEPRAZOLE [Concomitant]
  7. TOPAMAX [Concomitant]

REACTIONS (2)
  - Migraine [Unknown]
  - Mental status changes [Unknown]
